FAERS Safety Report 25858739 (Version 2)
Quarter: 2025Q4

REPORT INFORMATION
  Report Type: Spontaneous
  Country: JP (occurrence: JP)
  Receive Date: 20250929
  Receipt Date: 20251028
  Transmission Date: 20260117
  Serious: Yes (Other)
  Sender: MERCK SHARP & DOHME LLC
  Company Number: JP-009507513-2332607

PATIENT
  Age: 8 Decade
  Sex: Male

DRUGS (1)
  1. KEYTRUDA [Suspect]
     Active Substance: PEMBROLIZUMAB
     Indication: Lung adenocarcinoma stage IV
     Route: 041

REACTIONS (5)
  - Peripheral T-cell lymphoma unspecified [Recovering/Resolving]
  - Pyrexia [Recovering/Resolving]
  - Pleural effusion [Unknown]
  - Skin disorder [Unknown]
  - Neoplasm malignant [Unknown]
